FAERS Safety Report 21588987 (Version 1)
Quarter: 2022Q4

REPORT INFORMATION
  Report Type: Spontaneous
  Country: US (occurrence: None)
  Receive Date: 20221111
  Receipt Date: 20221111
  Transmission Date: 20230112
  Serious: Yes (Hospitalization)
  Sender: FDA-Public Use
  Company Number: None

PATIENT
  Sex: Female

DRUGS (1)
  1. ZEJULA [Suspect]
     Active Substance: NIRAPARIB
     Indication: Ovarian cancer
     Dosage: FREQUENCY : DAILY;?
     Route: 048
     Dates: start: 202208

REACTIONS (8)
  - Headache [None]
  - Nausea [None]
  - Vomiting [None]
  - Heart rate increased [None]
  - Dyspnoea [None]
  - Gait disturbance [None]
  - Haemoglobin decreased [None]
  - Therapy interrupted [None]
